FAERS Safety Report 13795728 (Version 1)
Quarter: 2017Q3

REPORT INFORMATION
  Report Type: Spontaneous
  Country: RO (occurrence: RO)
  Receive Date: 20170726
  Receipt Date: 20170726
  Transmission Date: 20171127
  Serious: Yes (Other)
  Sender: FDA-Public Use
  Company Number: RO-BAXTER-2017BAX028044

PATIENT
  Age: 31 Year
  Sex: Female

DRUGS (6)
  1. EPIRUBICIN [Suspect]
     Active Substance: EPIRUBICIN
     Indication: BREAST CANCER IN SITU
     Dosage: FEC REGIMEN
     Route: 065
     Dates: start: 201411
  2. 5 FLUOROURACIL [Suspect]
     Active Substance: FLUOROURACIL
     Indication: BREAST CANCER STAGE III
  3. ENDOXAN 200 MG PULBERE PENTRU SOLUTIE PERFUZABILA/INJECTABILA [Suspect]
     Active Substance: CYCLOPHOSPHAMIDE
     Indication: BREAST CANCER STAGE III
  4. EPIRUBICIN [Suspect]
     Active Substance: EPIRUBICIN
     Indication: BREAST CANCER STAGE III
     Dosage: FEC REGIMEN
     Route: 065
     Dates: end: 201501
  5. ENDOXAN 200 MG PULBERE PENTRU SOLUTIE PERFUZABILA/INJECTABILA [Suspect]
     Active Substance: CYCLOPHOSPHAMIDE
     Indication: BREAST CANCER IN SITU
     Dosage: FEC REGIMEN
     Route: 065
     Dates: start: 201411, end: 201501
  6. 5 FLUOROURACIL [Suspect]
     Active Substance: FLUOROURACIL
     Indication: BREAST CANCER IN SITU
     Dosage: FEC REGIMEN ON DAY 1
     Route: 065
     Dates: start: 201411, end: 201501

REACTIONS (1)
  - Haematotoxicity [Unknown]

NARRATIVE: CASE EVENT DATE: 2015
